FAERS Safety Report 4684316-X (Version None)
Quarter: 2005Q2

REPORT INFORMATION
  Report Type: 
  Country: None (occurrence: None)
  Receive Date: 20050607
  Receipt Date: 20050531
  Transmission Date: 20051028
  Serious: Yes (Hospitalization)
  Sender: FDA-Public Use
  Company Number: 2005SE03193

PATIENT
  Age: 9904 Day
  Sex: Male
  Weight: 92 kg

DRUGS (2)
  1. QUETIAPINE [Suspect]
     Indication: MENTAL DISORDER
     Dosage: NEW DOSE NOT SPECIFIED
     Route: 048
     Dates: start: 20050419, end: 20050501
  2. QUETIAPINE [Suspect]
     Route: 048
     Dates: start: 20050501

REACTIONS (1)
  - ACUTE PSYCHOSIS [None]
